FAERS Safety Report 8720818 (Version 2)
Quarter: 2015Q3

REPORT INFORMATION
  Report Type: Spontaneous
  Country: US (occurrence: US)
  Receive Date: 20120813
  Receipt Date: 20150703
  Transmission Date: 20151125
  Serious: No
  Sender: FDA-Public Use
  Company Number: US-ASTRAZENECA-2012SE55187

PATIENT
  Age: 73 Year
  Sex: Male
  Weight: 111.1 kg

DRUGS (9)
  1. PRAVASTATIN [Concomitant]
     Active Substance: PRAVASTATIN\PRAVASTATIN SODIUM
     Indication: BLOOD CHOLESTEROL
  2. FARXIGA [Suspect]
     Active Substance: DAPAGLIFLOZIN PROPANEDIOL
     Indication: DIABETES MELLITUS
     Route: 048
     Dates: start: 20140722, end: 20150601
  3. LOSARTAN. [Concomitant]
     Active Substance: LOSARTAN
     Indication: HYPERTENSION
  4. PRILOSEC [Suspect]
     Active Substance: OMEPRAZOLE MAGNESIUM
     Route: 048
  5. NEXIUM [Suspect]
     Active Substance: ESOMEPRAZOLE MAGNESIUM
     Route: 048
  6. METOPROLTAR [Concomitant]
     Indication: HYPERTENSION
  7. RANEXA SR [Concomitant]
     Indication: CARDIAC DISORDER
  8. TUMS [Concomitant]
     Active Substance: CALCIUM CARBONATE
  9. FINASTERIDE. [Concomitant]
     Active Substance: FINASTERIDE
     Indication: PROSTATOMEGALY

REACTIONS (5)
  - Malaise [Unknown]
  - Drug ineffective [Unknown]
  - Rash generalised [Not Recovered/Not Resolved]
  - Drug dose omission [Unknown]
  - Pruritus [Not Recovered/Not Resolved]

NARRATIVE: CASE EVENT DATE: 20150601
